FAERS Safety Report 13288798 (Version 2)
Quarter: 2017Q1

REPORT INFORMATION
  Report Type: Report from Study
  Country: None (occurrence: US)
  Receive Date: 20170302
  Receipt Date: 20170307
  Transmission Date: 20170428
  Serious: Yes (Hospitalization)
  Sender: FDA-Public Use
  Company Number: US-VIFOR (INTERNATIONAL) INC.-VIT-2017-02055

PATIENT
  Age: 49 Year
  Sex: Female

DRUGS (7)
  1. TEMAZEPAM. [Concomitant]
     Active Substance: TEMAZEPAM
  2. VELTASSA [Suspect]
     Active Substance: PATIROMER
     Indication: CARDIAC DISORDER
  3. PREMARIN [Concomitant]
     Active Substance: ESTROGENS, CONJUGATED
  4. VELTASSA [Suspect]
     Active Substance: PATIROMER
     Indication: RENAL DISORDER
  5. KEPPRA [Concomitant]
     Active Substance: LEVETIRACETAM
  6. VELTASSA [Suspect]
     Active Substance: PATIROMER
     Indication: BLOOD POTASSIUM
     Route: 048
  7. CARVEDILOL. [Concomitant]
     Active Substance: CARVEDILOL

REACTIONS (3)
  - Off label use [Unknown]
  - Intestinal obstruction [Not Recovered/Not Resolved]
  - Colectomy [Unknown]

NARRATIVE: CASE EVENT DATE: 201702
